FAERS Safety Report 26099293 (Version 1)
Quarter: 2025Q4

REPORT INFORMATION
  Report Type: Spontaneous
  Country: EU (occurrence: EU)
  Receive Date: 20251128
  Receipt Date: 20251128
  Transmission Date: 20260118
  Serious: Yes (Other)
  Sender: AUROBINDO
  Company Number: EU-AFSSAPS-TS2025001153

PATIENT
  Age: 70 Year
  Sex: Male
  Weight: 72 kg

DRUGS (3)
  1. AMOXICILLIN [Suspect]
     Active Substance: AMOXICILLIN
     Indication: Infection
     Dosage: 1 GRAM, 3 TIMES A DAY
     Dates: start: 20250926, end: 20251015
  2. CASPOFUNGIN [Suspect]
     Active Substance: CASPOFUNGIN
     Indication: Endocarditis candida
     Dosage: 150 MILLIGRAM, ONCE A DAY
     Dates: start: 20250930
  3. AMOXICILLIN\CLAVULANATE POTASSIUM [Suspect]
     Active Substance: AMOXICILLIN\CLAVULANATE POTASSIUM
     Indication: Infection
     Dosage: 1 DOSAGE FORM, 3 TIMES A DAY
     Dates: start: 20251002, end: 20251015

REACTIONS (1)
  - Cholestatic liver injury [Not Recovered/Not Resolved]

NARRATIVE: CASE EVENT DATE: 20251009
